FAERS Safety Report 8348136-7 (Version None)
Quarter: 2012Q2

REPORT INFORMATION
  Report Type: 
  Country: None (occurrence: None)
  Receive Date: 20120509
  Receipt Date: 20120507
  Transmission Date: 20120825
  Serious: Yes (Death)
  Sender: FDA-Public Use
  Company Number: JP-PFIZER INC-2012100226

PATIENT
  Age: 80 Year
  Sex: Female
  Weight: 46 kg

DRUGS (7)
  1. FAMOTIDINE [Concomitant]
     Indication: GASTRITIS PROPHYLAXIS
     Dosage: 10 MG, 2X/DAY
     Dates: end: 20120416
  2. AMAZOLON [Concomitant]
     Indication: PSYCHIATRIC SYMPTOM
     Dosage: 50 MG, 3X/DAY
     Dates: end: 20120416
  3. CILOSTAZOL [Concomitant]
     Indication: PROPHYLAXIS
     Dosage: 100 MG, 2X/DAY
     Dates: end: 20120416
  4. NICERGOLINE [Concomitant]
     Indication: CEREBRAL CIRCULATORY FAILURE
     Dosage: 5 MG, 3X/DAY
     Dates: end: 20120416
  5. ASPIRIN [Concomitant]
     Indication: PROPHYLAXIS
     Dosage: 200 MG, 1X/DAY
     Dates: end: 20120416
  6. ZITHROMAX [Suspect]
     Indication: SINUSITIS
     Dosage: 500 MG, 1X/DAY VIA GASTROSTOMY TUBE
     Dates: start: 20120413, end: 20120415
  7. CLARITHROMYCIN [Suspect]
     Indication: SINUSITIS
     Dosage: 200 MG, 2X/DAY VIA GASTROSTOMY TUBE
     Dates: start: 20120410, end: 20120412

REACTIONS (2)
  - BLOOD PRESSURE DECREASED [None]
  - INTERSTITIAL LUNG DISEASE [None]
